FAERS Safety Report 5402098-0 (Version None)
Quarter: 2007Q3

REPORT INFORMATION
  Report Type: 
  Country: None (occurrence: None)
  Receive Date: 20070801
  Receipt Date: 20070719
  Transmission Date: 20080115
  Serious: Yes (Other)
  Sender: FDA-Public Use
  Company Number: US-JNJFOC-20070507122

PATIENT
  Sex: Male
  Weight: 124.74 kg

DRUGS (10)
  1. REMICADE [Suspect]
     Indication: RHEUMATOID ARTHRITIS
     Route: 042
  2. MTX [Concomitant]
     Indication: RHEUMATOID ARTHRITIS
  3. FOLIC ACID [Concomitant]
  4. SALSALATE [Concomitant]
     Indication: PAIN
  5. PREDNISONE [Concomitant]
     Indication: RHEUMATOID ARTHRITIS
  6. AMITRIPTYLINE HCL [Concomitant]
     Indication: PAIN
  7. AMITRIPTYLINE HCL [Concomitant]
     Indication: SLEEP DISORDER THERAPY
  8. DARVOCET [Concomitant]
     Indication: PAIN
  9. NEURONTIN [Concomitant]
     Indication: NEUROPATHY
  10. VALIUM [Concomitant]
     Indication: MUSCLE SPASMS

REACTIONS (1)
  - VISUAL DISTURBANCE [None]
